FAERS Safety Report 8711745 (Version 3)
Quarter: 2013Q2

REPORT INFORMATION
  Report Type: Spontaneous
  Country: US (occurrence: US)
  Receive Date: 20120807
  Receipt Date: 20130517
  Transmission Date: 20140414
  Serious: Yes (Hospitalization, Other)
  Sender: FDA-Public Use
  Company Number: US-BAYER-2012-076376

PATIENT
  Age: 22 Year
  Sex: Female
  Weight: 79.37 kg

DRUGS (5)
  1. GIANVI [Suspect]
     Indication: POLYCYSTIC OVARIES
     Dosage: UNK
     Dates: start: 2007, end: 2012
  2. GIANVI [Suspect]
     Indication: POLYCYSTIC OVARIES
     Dosage: UNK
     Dates: start: 20120501, end: 20120520
  3. YAZ [Suspect]
     Indication: ACNE
     Dosage: UNK
     Dates: start: 2007, end: 201205
  4. YAZ [Suspect]
     Indication: POLYCYSTIC OVARIES
  5. MORTIN [Concomitant]
     Dosage: UNK
     Dates: start: 2007, end: 2012

REACTIONS (10)
  - Cerebrovascular accident [None]
  - Injury [None]
  - Pain [None]
  - Pulmonary embolism [None]
  - Pulmonary hypertension [None]
  - Deep vein thrombosis [None]
  - Deep vein thrombosis [None]
  - Thrombophlebitis superficial [None]
  - Pain [None]
  - Off label use [None]
